FAERS Safety Report 9284153 (Version 1)
Quarter: 2013Q2

REPORT INFORMATION
  Report Type: Spontaneous
  Country: CA (occurrence: None)
  Receive Date: 20130502
  Receipt Date: 20130502
  Transmission Date: 20140414
  Serious: Yes (Life-Threatening, Hospitalization)
  Sender: FDA-Public Use
  Company Number: 1693378

PATIENT
  Age: 13 Year
  Sex: Female
  Weight: 57 kg

DRUGS (5)
  1. EPINEPHRINE [Suspect]
     Dosage: 10 MIL MILLILITRE(S), SUBCUTANEOUS
     Route: 058
  2. NITROGLYCERIN [Suspect]
     Indication: SUPRAVENTRICULAR TACHYCARDIA
     Dosage: 2 MCG/MIN
     Route: 041
  3. NITROGLYCERIN [Suspect]
     Indication: HYPERTENSION
     Dosage: 2 MCG/MIN
     Route: 041
  4. PROPOFOL [Concomitant]
  5. FENTANYL [Concomitant]

REACTIONS (10)
  - Cardiac failure [None]
  - Hypotension [None]
  - Pulmonary oedema [None]
  - Troponin increased [None]
  - Ventricular hypokinesia [None]
  - Ejection fraction decreased [None]
  - Tachyarrhythmia [None]
  - Hypertension [None]
  - Wrong drug administered [None]
  - Overdose [None]
